FAERS Safety Report 21448932 (Version 2)
Quarter: 2022Q4

REPORT INFORMATION
  Report Type: Spontaneous
  Country: US (occurrence: US)
  Receive Date: 20221013
  Receipt Date: 20221019
  Transmission Date: 20230112
  Serious: No
  Sender: FDA-Public Use
  Company Number: US-JNJFOC-20220943303

PATIENT
  Age: 55 Year
  Sex: Male
  Weight: 74.910 kg

DRUGS (3)
  1. TREMFYA [Suspect]
     Active Substance: GUSELKUMAB
     Indication: Psoriasis
     Route: 065
     Dates: start: 202202
  2. TREMFYA [Suspect]
     Active Substance: GUSELKUMAB
     Indication: Skin disorder
     Route: 058
     Dates: start: 202203
  3. TREMFYA [Suspect]
     Active Substance: GUSELKUMAB
     Indication: Pityriasis rubra pilaris

REACTIONS (4)
  - Product dose omission issue [Unknown]
  - Needle issue [Unknown]
  - Product quality issue [Unknown]
  - Inappropriate schedule of product administration [Unknown]

NARRATIVE: CASE EVENT DATE: 20220920
